FAERS Safety Report 18154219 (Version 3)
Quarter: 2022Q3

REPORT INFORMATION
  Report Type: Other
  Country: GB (occurrence: None)
  Receive Date: 20200816
  Receipt Date: 20220902
  Transmission Date: 20221026
  Serious: Yes (Hospitalization, Other)
  Sender: FDA-Public Use
  Company Number: GB-ROCHE-2624984

PATIENT
  Sex: Female

DRUGS (11)
  1. TOCILIZUMAB [Suspect]
     Active Substance: TOCILIZUMAB
     Indication: Giant cell arteritis
     Route: 058
     Dates: start: 20200205
  2. TOCILIZUMAB [Suspect]
     Active Substance: TOCILIZUMAB
     Indication: Rheumatoid arthritis
     Route: 058
     Dates: start: 2017
  3. LEVOTHYROXINE [Concomitant]
     Active Substance: LEVOTHYROXINE
  4. PREDNISOLONE [Concomitant]
     Active Substance: PREDNISOLONE
  5. LANSOPRAZOLE [Concomitant]
     Active Substance: LANSOPRAZOLE
  6. AMLODIPINE [Concomitant]
     Active Substance: AMLODIPINE BESYLATE
  7. INDAPAMIDE [Concomitant]
     Active Substance: INDAPAMIDE
  8. CANDESARTAN [Concomitant]
     Active Substance: CANDESARTAN
  9. CALCIUM CARBONATE\CHOLECALCIFEROL [Concomitant]
     Active Substance: CALCIUM CARBONATE\CHOLECALCIFEROL
  10. CALCIUM [Concomitant]
     Active Substance: CALCIUM
  11. ZOLEDRONIC [Concomitant]
     Active Substance: ZOLEDRONIC ACID

REACTIONS (10)
  - Kidney infection [Unknown]
  - Renal impairment [Unknown]
  - Device issue [Unknown]
  - Ill-defined disorder [Unknown]
  - White blood cell count decreased [Unknown]
  - Neutrophil count decreased [Unknown]
  - Blood creatinine increased [Unknown]
  - Ill-defined disorder [Unknown]
  - Injection site haemorrhage [Unknown]
  - Inappropriate schedule of product administration [Unknown]

NARRATIVE: CASE EVENT DATE: 20200513
